FAERS Safety Report 9421245 (Version 1)
Quarter: 2013Q3

REPORT INFORMATION
  Report Type: Spontaneous
  Country: DE (occurrence: DE)
  Receive Date: 20130725
  Receipt Date: 20130725
  Transmission Date: 20140515
  Serious: Yes (Other)
  Sender: FDA-Public Use
  Company Number: DE-BAXTER-2013BAX027983

PATIENT
  Age: 31 Year
  Sex: Female

DRUGS (14)
  1. ENDOXAN 1G [Suspect]
     Indication: BREAST CANCER
     Route: 042
     Dates: start: 20090810
  2. ENDOXAN 1G [Suspect]
     Route: 042
     Dates: start: 20090831
  3. ENDOXAN 1G [Suspect]
     Route: 042
     Dates: start: 20090921, end: 20090921
  4. FLUOROURACIL [Suspect]
     Indication: BREAST CANCER
     Route: 042
     Dates: start: 20090810
  5. FLUOROURACIL [Suspect]
     Route: 042
     Dates: start: 20090831
  6. FLUOROURACIL [Suspect]
     Route: 042
     Dates: start: 20090921, end: 20090921
  7. ADRIAMYCIN [Suspect]
     Indication: BREAST CANCER
     Route: 042
     Dates: start: 20090810
  8. ADRIAMYCIN [Suspect]
     Route: 042
     Dates: start: 20090831
  9. ADRIAMYCIN [Suspect]
     Route: 042
     Dates: start: 20090921, end: 20090921
  10. ARILIN [Concomitant]
     Indication: VAGINAL INFECTION
     Route: 067
     Dates: start: 20090403, end: 20090410
  11. PSORCUTAN BETA [Concomitant]
     Indication: SKIN DISORDER
     Route: 003
  12. FOLIO [Concomitant]
     Indication: PROPHYLAXIS OF NEURAL TUBE DEFECT
     Route: 048
  13. CEFAZOLIN [Concomitant]
     Indication: INFECTION PROPHYLAXIS
     Route: 042
     Dates: start: 20091103, end: 20091104
  14. CYTOTEC [Concomitant]
     Indication: LABOUR INDUCTION
     Route: 067

REACTIONS (1)
  - Exposure during pregnancy [Unknown]
